FAERS Safety Report 7111954-7 (Version None)
Quarter: 2010Q4

REPORT INFORMATION
  Report Type: 
  Country: None (occurrence: None)
  Receive Date: 20101119
  Receipt Date: 20101108
  Transmission Date: 20110411
  Serious: Yes (Disabling)
  Sender: FDA-Public Use
  Company Number: DE-JNJFOC-20101102005

PATIENT
  Age: 82 Year
  Sex: Female
  Weight: 50 kg

DRUGS (10)
  1. HALDOL [Suspect]
     Indication: ILL-DEFINED DISORDER
     Route: 048
     Dates: start: 20100804, end: 20100805
  2. HALDOL [Suspect]
     Route: 048
     Dates: start: 20100804, end: 20100805
  3. SEROQUEL [Suspect]
     Indication: ILL-DEFINED DISORDER
     Route: 048
  4. SEROQUEL [Suspect]
     Route: 048
  5. SEROQUEL [Suspect]
     Route: 048
  6. SEROQUEL [Suspect]
     Route: 048
  7. SEROQUEL [Suspect]
     Route: 048
  8. DELIX [Concomitant]
     Route: 048
  9. OBSIDAN [Concomitant]
     Route: 048
  10. PANTOPRAZOLE SODIUM [Concomitant]
     Route: 048

REACTIONS (7)
  - ADVERSE EVENT [None]
  - FALL [None]
  - FEMUR FRACTURE [None]
  - FLUID INTAKE REDUCED [None]
  - GENERAL PHYSICAL HEALTH DETERIORATION [None]
  - HYPOPHAGIA [None]
  - IMMOBILE [None]
